FAERS Safety Report 7173055-1 (Version None)
Quarter: 2010Q4

REPORT INFORMATION
  Report Type: 
  Country: None (occurrence: None)
  Receive Date: 20101219
  Receipt Date: 20100219
  Transmission Date: 20110411
  Serious: No
  Sender: FDA-Public Use
  Company Number: US-AMGEN-KDL393971

PATIENT

DRUGS (5)
  1. ENBREL [Suspect]
     Indication: PRODUCT USED FOR UNKNOWN INDICATION
     Dosage: 50 MG, QWK
     Route: 058
  2. DEXTROPROPOXYPHENE HYDROCHLORIDE [Concomitant]
     Dosage: 65 MG, UNK
  3. MIRTAZAPINE [Concomitant]
     Dosage: 30 MG, UNK
  4. DIAZEPAM [Concomitant]
     Dosage: 2 MG, UNK
  5. METOPROLOL [Concomitant]
     Dosage: 25 MG, UNK

REACTIONS (3)
  - INFLUENZA [None]
  - NASOPHARYNGITIS [None]
  - STAPHYLOCOCCAL INFECTION [None]
